FAERS Safety Report 8186815-5 (Version None)
Quarter: 2012Q1

REPORT INFORMATION
  Report Type: 
  Country: None (occurrence: None)
  Receive Date: 20120306
  Receipt Date: 20120229
  Transmission Date: 20120608
  Serious: Yes (Other)
  Sender: FDA-Public Use
  Company Number: DE-BRISTOL-MYERS SQUIBB COMPANY-16426678

PATIENT

DRUGS (1)
  1. BARACLUDE [Suspect]
     Dosage: ADMINISTERED VIA A TUBE

REACTIONS (1)
  - DYSPHAGIA [None]
